FAERS Safety Report 8233622-0 (Version None)
Quarter: 2012Q1

REPORT INFORMATION
  Report Type: 
  Country: None (occurrence: None)
  Receive Date: 20120326
  Receipt Date: 20120312
  Transmission Date: 20120608
  Serious: Yes (Hospitalization)
  Sender: FDA-Public Use
  Company Number: GB-MYLANLABS-2012S1005753

PATIENT
  Age: 72 Year
  Sex: Male

DRUGS (7)
  1. CITALOPRAM HYDROBROMIDE [Concomitant]
     Indication: DEPRESSION
     Dosage: 20MG
     Route: 065
  2. SIMVASTATIN [Concomitant]
     Dosage: 40MG
     Route: 065
  3. DIGOXIN [Concomitant]
     Dosage: 125 MICROG
     Route: 065
  4. INDAPAMIDE [Concomitant]
     Dosage: 2.5MG
     Route: 065
  5. AMITRIPTYLINE HCL [Concomitant]
     Dosage: 25MG
     Route: 065
  6. CODEINE SULFATE [Concomitant]
     Dosage: 30MG
     Route: 065
  7. LEVETIRACETAM [Suspect]
     Indication: EPILEPSY
     Route: 065

REACTIONS (7)
  - MOBILITY DECREASED [None]
  - DEPRESSION [None]
  - DELIRIUM [None]
  - PSYCHOTIC DISORDER [None]
  - SOMNOLENCE [None]
  - ASTHENIA [None]
  - INCONTINENCE [None]
